FAERS Safety Report 4299407-5 (Version None)
Quarter: 2004Q1

REPORT INFORMATION
  Report Type: 
  Country: None (occurrence: None)
  Receive Date: 20040217
  Receipt Date: 20040204
  Transmission Date: 20041129
  Serious: Yes (Hospitalization, Other)
  Sender: FDA-Public Use
  Company Number: 2004001629

PATIENT
  Age: 82 Year
  Sex: Female
  Weight: 67 kg

DRUGS (10)
  1. ZOLOFT [Suspect]
     Indication: ILL-DEFINED DISORDER
     Dosage: (DAILY) ORAL
     Route: 048
     Dates: start: 20021215, end: 20031218
  2. CELECOXIB (CELECOXIB) [Suspect]
     Indication: ILL-DEFINED DISORDER
     Dosage: (DAILY) ORAL
     Route: 048
     Dates: start: 20031201, end: 20031218
  3. MOLSIDOMINE (MOLSIDOMINE) [Concomitant]
  4. ALPRAZOLAM [Concomitant]
  5. BISOPROLOL FUMARATE [Concomitant]
  6. LACIDIPINE (LACIDIPINE) [Concomitant]
  7. CLOPIDOGREL BISULFATE [Concomitant]
  8. DIOSMIN (DIOSMIN) [Concomitant]
  9. ZOPICLONE (ZOPLICLONE) [Concomitant]
  10. PRAVASTATIN [Concomitant]

REACTIONS (7)
  - BRAIN SCAN ABNORMAL [None]
  - DRUG INTERACTION [None]
  - FALL [None]
  - HAEMATOMA [None]
  - HALLUCINATIONS, MIXED [None]
  - HYPOREFLEXIA [None]
  - VERTIGO [None]
